FAERS Safety Report 11277382 (Version 3)
Quarter: 2015Q4

REPORT INFORMATION
  Report Type: Report from Study
  Country: US (occurrence: US)
  Receive Date: 20150716
  Receipt Date: 20151216
  Transmission Date: 20160304
  Serious: Yes (Hospitalization, Other)
  Sender: FDA-Public Use
  Company Number: US-AMGEN-USASL2015069263

PATIENT
  Age: 74 Year
  Sex: Male

DRUGS (1)
  1. ENBREL [Suspect]
     Active Substance: ETANERCEPT
     Indication: PSORIATIC ARTHROPATHY
     Dosage: 50 MG, QWK
     Route: 065
     Dates: start: 20040101

REACTIONS (4)
  - Arthritis [Unknown]
  - Abdominal pain upper [Recovered/Resolved]
  - Cholecystectomy [Unknown]
  - Dental implantation [Unknown]

NARRATIVE: CASE EVENT DATE: 2015
